FAERS Safety Report 4587697-0 (Version None)
Quarter: 2005Q1

REPORT INFORMATION
  Report Type: 
  Country: None (occurrence: None)
  Receive Date: 20050125
  Receipt Date: 20040820
  Transmission Date: 20050727
  Serious: No
  Sender: FDA-Public Use
  Company Number: USA030434329

PATIENT
  Age: 59 Year
  Sex: Female
  Weight: 48 kg

DRUGS (6)
  1. FORTEO [Suspect]
     Indication: OSTEOPOROSIS
     Dosage: 20 UG/1 DAY
     Dates: start: 20030401
  2. CALCIUM GLUCONATE [Concomitant]
  3. EXCEDRIN (MIGRAINE) [Concomitant]
  4. MIDRIN [Concomitant]
  5. PARACETAMOL/ CAFFEINE [Concomitant]
  6. TYLENOL [Concomitant]

REACTIONS (10)
  - DIZZINESS [None]
  - FEELING JITTERY [None]
  - INJECTION SITE ERYTHEMA [None]
  - INJECTION SITE IRRITATION [None]
  - INJECTION SITE PAIN [None]
  - INJECTION SITE PRURITUS [None]
  - INJECTION SITE URTICARIA [None]
  - MUSCLE TWITCHING [None]
  - PAIN IN EXTREMITY [None]
  - WEIGHT INCREASED [None]
